FAERS Safety Report 4597737-0 (Version None)
Quarter: 2005Q1

REPORT INFORMATION
  Report Type: 
  Country: None (occurrence: None)
  Receive Date: 20050303
  Receipt Date: 20041228
  Transmission Date: 20050727
  Serious: Yes (Life-Threatening, Hospitalization, Disabling)
  Sender: FDA-Public Use
  Company Number: DE-MERCK-0412DEU00230

PATIENT
  Age: 63 Year
  Sex: Female
  Weight: 92 kg

DRUGS (3)
  1. FOSAMAX [Suspect]
     Indication: OSTEOPOROSIS
     Route: 048
     Dates: start: 20040315, end: 20041126
  2. IRBESARTAN [Suspect]
     Indication: HYPERTENSION
     Route: 048
     Dates: start: 19971218
  3. DICLOFENAC RESINATE [Suspect]
     Route: 048
     Dates: start: 20040712

REACTIONS (3)
  - DIALYSIS [None]
  - DRUG INTERACTION [None]
  - RENAL FAILURE ACUTE [None]
